FAERS Safety Report 8156896-3 (Version None)
Quarter: 2012Q1

REPORT INFORMATION
  Report Type: 
  Country: None (occurrence: None)
  Receive Date: 20120222
  Receipt Date: 20120216
  Transmission Date: 20120608
  Serious: Yes (Other)
  Sender: FDA-Public Use
  Company Number: JP-GLAXOSMITHKLINE-B0782479A

PATIENT
  Sex: Male

DRUGS (2)
  1. HARNAL D [Concomitant]
     Route: 048
     Dates: start: 20110928
  2. DUTASTERIDE [Suspect]
     Indication: BENIGN PROSTATIC HYPERPLASIA
     Dosage: .5MG PER DAY
     Route: 048
     Dates: start: 20120124

REACTIONS (3)
  - SUBILEUS [None]
  - WEIGHT DECREASED [None]
  - CONSTIPATION [None]
